FAERS Safety Report 8126606 (Version 2)
Quarter: 2013Q1

REPORT INFORMATION
  Report Type: Spontaneous
  Country: US (occurrence: US)
  Receive Date: 20110908
  Receipt Date: 20130207
  Transmission Date: 20140127
  Serious: Yes (Hospitalization)
  Sender: FDA-Public Use
  Company Number: US-GLAXOSMITHKLINE-A0896871A

PATIENT
  Age: 66 Year
  Sex: Male
  Weight: 85.9 kg

DRUGS (6)
  1. AVANDIA [Suspect]
     Indication: DIABETES MELLITUS
     Dosage: 4MG TWICE PER DAY
     Route: 048
     Dates: start: 20060310, end: 200707
  2. ZANTAC [Concomitant]
  3. LISINOPRIL + HYDROCHLOROTHIAZIDE [Concomitant]
  4. CRESTOR [Concomitant]
  5. ZETIA [Concomitant]
  6. GLUCOPHAGE [Concomitant]

REACTIONS (5)
  - Angina pectoris [Recovering/Resolving]
  - Myocardial infarction [Unknown]
  - Atrial fibrillation [Unknown]
  - Cardiac failure congestive [Unknown]
  - Coronary artery disease [Unknown]
